FAERS Safety Report 8816518 (Version 1)
Quarter: 2012Q4

REPORT INFORMATION
  Report Type: Spontaneous
  Country: US (occurrence: None)
  Receive Date: 20120927
  Receipt Date: 20120927
  Transmission Date: 20130627
  Serious: Yes (Hospitalization)
  Sender: FDA-Public Use
  Company Number: AXC-2012-000428

PATIENT
  Age: 10 Year
  Sex: Male
  Weight: 37.1 kg

DRUGS (10)
  1. CARAFATE [Suspect]
     Route: 048
     Dates: start: 201103
  2. AMITRIPTYLINE [Concomitant]
  3. LORAZEPAM  (LORAZEPAM) [Concomitant]
  4. MORPHINE (MORPHINE) [Concomitant]
  5. MIRALAX /00754501/ (MACROGOL) [Concomitant]
  6. OXYCODONE/ACETAMINOPHEN (OXYCODONE HYDROCHLORIDE, PARACETAMOL) [Concomitant]
  7. LIDOCAINE (LIDOCAINE) [Concomitant]
  8. LIDOCAINE (LIDOCAINE) [Concomitant]
  9. LANSOPRAZOLE (LANSOPRAZOLE) [Concomitant]
  10. ACETAMINOPHINE (PARACETAMOL) [Concomitant]

REACTIONS (4)
  - Food allergy [None]
  - Abdominal pain [None]
  - Hypophagia [None]
  - Gastrooesophageal reflux disease [None]
